FAERS Safety Report 16111966 (Version 2)
Quarter: 2019Q1

REPORT INFORMATION
  Report Type: Report from Study
  Country: TW (occurrence: TW)
  Receive Date: 20190325
  Receipt Date: 20190329
  Transmission Date: 20190418
  Serious: Yes (Hospitalization)
  Sender: FDA-Public Use
  Company Number: TW-SA-2019SA075472

PATIENT
  Age: 30 Year
  Sex: Female
  Weight: 64.7 kg

DRUGS (2)
  1. INSULIN LISPRO [Suspect]
     Active Substance: INSULIN LISPRO
     Indication: TYPE 1 DIABETES MELLITUS
     Dosage: 30 U, QD
     Route: 058
     Dates: start: 20180308, end: 20180502
  2. INSULIN GLARGINE [Suspect]
     Active Substance: INSULIN GLARGINE
     Indication: TYPE 1 DIABETES MELLITUS
     Dosage: 25 U, QD
     Dates: start: 20180308

REACTIONS (9)
  - Pain [Recovering/Resolving]
  - Hyperglycaemia [Recovering/Resolving]
  - Pyrexia [Recovered/Resolved]
  - Angiomyolipoma [Recovering/Resolving]
  - Oliguria [Recovering/Resolving]
  - Flank pain [Recovering/Resolving]
  - Leukocytosis [Recovering/Resolving]
  - Hyponatraemia [Recovering/Resolving]
  - Abdominal pain upper [Recovering/Resolving]

NARRATIVE: CASE EVENT DATE: 20190304
